FAERS Safety Report 22304226 (Version 1)
Quarter: 2023Q2

REPORT INFORMATION
  Report Type: Spontaneous
  Country: US (occurrence: None)
  Receive Date: 20230509
  Receipt Date: 20230509
  Transmission Date: 20230721
  Serious: No
  Sender: FDA-Public Use
  Company Number: None

PATIENT
  Sex: Male

DRUGS (1)
  1. HUMIRA [Suspect]
     Active Substance: ADALIMUMAB
     Indication: Cutaneous sarcoidosis
     Dosage: FREQUENCY : WEEKLY;?
     Route: 058
     Dates: start: 20230508

REACTIONS (1)
  - Therapeutic product effect incomplete [None]
